FAERS Safety Report 19181465 (Version 11)
Quarter: 2022Q4

REPORT INFORMATION
  Report Type: Report from Study
  Country: CA (occurrence: CA)
  Receive Date: 20210426
  Receipt Date: 20221028
  Transmission Date: 20230112
  Serious: Yes (Other)
  Sender: FDA-Public Use
  Company Number: CA-OTSUKA-2021_013581

PATIENT
  Sex: Female

DRUGS (2)
  1. CEDAZURIDINE\DECITABINE [Suspect]
     Active Substance: CEDAZURIDINE\DECITABINE
     Indication: Myelodysplastic syndrome
     Dosage: (35MG/100MG) (5 TABLETS PER CYCLE)
     Route: 065
     Dates: start: 20210331
  2. CEDAZURIDINE\DECITABINE [Suspect]
     Active Substance: CEDAZURIDINE\DECITABINE
     Dosage: 135 MG, QD
     Route: 048
     Dates: end: 20221019

REACTIONS (6)
  - Full blood count abnormal [Unknown]
  - Red blood cell transfusion [Unknown]
  - Blast cell count decreased [Unknown]
  - Cognitive disorder [Unknown]
  - Product use issue [Unknown]
  - Therapy interrupted [Unknown]
